FAERS Safety Report 23377654 (Version 1)
Quarter: 2024Q1

REPORT INFORMATION
  Report Type: Spontaneous
  Country: US (occurrence: US)
  Receive Date: 20240108
  Receipt Date: 20240108
  Transmission Date: 20240410
  Serious: Yes (Other)
  Sender: FDA-Public Use
  Company Number: US-ELI_LILLY_AND_COMPANY-US202312014477

PATIENT
  Age: 77 Year
  Sex: Male

DRUGS (1)
  1. MOUNJARO [Suspect]
     Active Substance: TIRZEPATIDE
     Indication: Weight control
     Dosage: 7.5 MG, UNKNOWN
     Route: 065

REACTIONS (12)
  - Syncope [Recovering/Resolving]
  - Blood glucose increased [Not Recovered/Not Resolved]
  - Fall [Unknown]
  - Gout [Not Recovered/Not Resolved]
  - Headache [Recovering/Resolving]
  - Illness [Recovering/Resolving]
  - Somnolence [Not Recovered/Not Resolved]
  - Decreased appetite [Not Recovered/Not Resolved]
  - Asthenia [Not Recovered/Not Resolved]
  - Diarrhoea [Recovering/Resolving]
  - Nausea [Recovering/Resolving]
  - Off label use [Unknown]
